FAERS Safety Report 24238859 (Version 2)
Quarter: 2024Q3

REPORT INFORMATION
  Report Type: Spontaneous
  Country: AU (occurrence: AU)
  Receive Date: 20240822
  Receipt Date: 20240829
  Transmission Date: 20241016
  Serious: Yes (Other)
  Sender: BAYER
  Company Number: AU-BAYER-2024A120165

PATIENT

DRUGS (2)
  1. FINERENONE [Suspect]
     Active Substance: FINERENONE
     Indication: Chronic kidney disease
     Dosage: UNK
     Dates: start: 20240122
  2. FINERENONE [Suspect]
     Active Substance: FINERENONE
     Indication: Type 2 diabetes mellitus

REACTIONS (1)
  - Cardiac failure [None]
